FAERS Safety Report 19597289 (Version 1)
Quarter: 2021Q3

REPORT INFORMATION
  Report Type: Spontaneous
  Country: JP (occurrence: JP)
  Receive Date: 20210723
  Receipt Date: 20210723
  Transmission Date: 20211014
  Serious: Yes (Other)
  Sender: FDA-Public Use
  Company Number: JP-JNJFOC-20210743395

PATIENT
  Sex: Female

DRUGS (3)
  1. METHOTREXATE. [Concomitant]
     Active Substance: METHOTREXATE
     Dosage: DOSE UNKNOWN
     Route: 048
  2. SIMPONI [Suspect]
     Active Substance: GOLIMUMAB
     Indication: RHEUMATOID ARTHRITIS
     Dosage: DOSE UNKNOWN
     Route: 058
  3. COVID?19 VACCINE [Concomitant]
     Dosage: DOSE UNKNOWN, THE FIRST DOSE
     Route: 030
     Dates: start: 20210630, end: 20210630

REACTIONS (3)
  - Treatment noncompliance [Unknown]
  - Pyelonephritis [Unknown]
  - Surgery [Unknown]

NARRATIVE: CASE EVENT DATE: 2021
